FAERS Safety Report 9371008 (Version 1)
Quarter: 2013Q2

REPORT INFORMATION
  Report Type: Spontaneous
  Country: CH (occurrence: CH)
  Receive Date: 20130627
  Receipt Date: 20130627
  Transmission Date: 20140414
  Serious: Yes (Other)
  Sender: FDA-Public Use
  Company Number: CH-ROCHE-1241768

PATIENT
  Age: 62 Year
  Sex: Male
  Weight: 97 kg

DRUGS (8)
  1. AVASTIN [Suspect]
     Indication: EYE DISORDER
     Route: 047
     Dates: start: 20120618
  2. LUCENTIS [Suspect]
     Indication: EYE DISORDER
     Route: 047
     Dates: start: 20121211, end: 201301
  3. CANDESARTAN CILEXETIL/HYDROCHLOROTHIAZIDE [Suspect]
     Indication: HYPERTENSION
     Route: 048
     Dates: end: 2013
  4. AMLODIPIN [Suspect]
     Indication: HYPERTENSION
     Route: 048
     Dates: end: 2013
  5. METFORMIN HYDROCHLORIDE [Concomitant]
     Indication: TYPE 2 DIABETES MELLITUS
     Route: 048
     Dates: end: 2013
  6. GLICLAZIDE [Concomitant]
     Indication: TYPE 2 DIABETES MELLITUS
     Route: 048
     Dates: end: 2013
  7. METOPROLOL SUCCINATE [Concomitant]
     Indication: HYPERTENSION
     Route: 048
     Dates: end: 2013
  8. ACETYLSALICYLIC ACID [Concomitant]
     Route: 048
     Dates: end: 2013

REACTIONS (1)
  - Tubulointerstitial nephritis [Not Recovered/Not Resolved]
